FAERS Safety Report 8127024-5 (Version None)
Quarter: 2012Q1

REPORT INFORMATION
  Report Type: 
  Country: None (occurrence: None)
  Receive Date: 20120210
  Receipt Date: 20120206
  Transmission Date: 20120608
  Serious: No
  Sender: FDA-Public Use
  Company Number: US-PFIZER INC-2012032353

PATIENT
  Sex: Female

DRUGS (1)
  1. LYBREL [Suspect]
     Dosage: UNK
     Dates: start: 20111222

REACTIONS (1)
  - MENORRHAGIA [None]
